FAERS Safety Report 6933335-9 (Version None)
Quarter: 2010Q3

REPORT INFORMATION
  Report Type: 
  Country: None (occurrence: None)
  Receive Date: 20100820
  Receipt Date: 20100730
  Transmission Date: 20110219
  Serious: Yes (Hospitalization)
  Sender: FDA-Public Use
  Company Number: US-BAYER-201030595NA

PATIENT
  Age: 27 Year
  Sex: Female
  Weight: 104 kg

DRUGS (3)
  1. YASMIN [Suspect]
     Indication: MENSTRUATION IRREGULAR
     Route: 048
     Dates: start: 20060501, end: 20090701
  2. DROSPIRENONE AND EHTINYL ESTRADIOL [Suspect]
     Indication: MENSTRUATION IRREGULAR
     Route: 048
     Dates: start: 20060501, end: 20090701
  3. SHAKLEE VITAMIN [Concomitant]
     Dosage: DAILY
     Dates: start: 19990101

REACTIONS (2)
  - DYSPEPSIA [None]
  - GALLBLADDER DISORDER [None]
